FAERS Safety Report 11927357 (Version 4)
Quarter: 2016Q2

REPORT INFORMATION
  Report Type: Report from Study
  Country: US (occurrence: US)
  Receive Date: 20160119
  Receipt Date: 20160525
  Transmission Date: 20160815
  Serious: Yes (Hospitalization)
  Sender: FDA-Public Use
  Company Number: US-ACTELION-A-US2015-126695

PATIENT
  Age: 45 Year
  Sex: Female

DRUGS (4)
  1. COUMADIN [Concomitant]
     Active Substance: WARFARIN SODIUM
  2. XARELTO [Concomitant]
     Active Substance: RIVAROXABAN
  3. MACITENTAN [Suspect]
     Active Substance: MACITENTAN
     Indication: PULMONARY HYPERTENSION
     Dosage: 10 MG, QD
     Route: 048
     Dates: start: 20141223
  4. VELETRI [Suspect]
     Active Substance: EPOPROSTENOL
     Indication: PULMONARY HYPERTENSION
     Dosage: 60 NG/KG, PER MIN
     Route: 042
     Dates: start: 20110607

REACTIONS (14)
  - Malaise [Unknown]
  - Hyperhidrosis [Unknown]
  - Catheter site pruritus [Unknown]
  - Skin sensitisation [Unknown]
  - Pyrexia [Unknown]
  - Tenderness [Unknown]
  - Infection [Unknown]
  - Device related infection [Unknown]
  - Sluggishness [Unknown]
  - Expired product administered [Unknown]
  - Fatigue [Unknown]
  - Catheter culture positive [Unknown]
  - Staphylococcal bacteraemia [Recovering/Resolving]
  - Blood culture positive [Recovering/Resolving]
